FAERS Safety Report 16407719 (Version 2)
Quarter: 2019Q2

REPORT INFORMATION
  Report Type: Report from Study
  Country: DO (occurrence: DO)
  Receive Date: 20190609
  Receipt Date: 20190628
  Transmission Date: 20190711
  Serious: Yes (Hospitalization)
  Sender: FDA-Public Use
  Company Number: PHHY2019DO132259

PATIENT
  Age: 12 Year
  Sex: Female

DRUGS (6)
  1. VITAMIN B COMPLEX [Concomitant]
     Active Substance: CYANOCOBALAMIN\DEXPANTHENOL\NIACINAMIDE\PYRIDOXINE HYDROCHLORIDE\RIBOFLAVIN 5^-PHOSPHATE SODIUM\THIAMINE HYDROCHLORIDE\VITAMIN B COMPLEX
     Indication: SICKLE CELL ANAEMIA
     Route: 065
  2. ASPIRIN. [Concomitant]
     Active Substance: ASPIRIN
     Indication: SICKLE CELL ANAEMIA
     Dosage: 81 MG, UNK
     Route: 065
  3. ENALAPRIL [Concomitant]
     Active Substance: ENALAPRIL
     Indication: RENAL DISORDER
     Route: 065
  4. HYDROXYUREA. [Concomitant]
     Active Substance: HYDROXYUREA
     Indication: SICKLE CELL ANAEMIA
     Route: 005
  5. FOLIC ACID. [Concomitant]
     Active Substance: FOLIC ACID
     Indication: SICKLE CELL ANAEMIA
     Route: 065
  6. EXJADE [Suspect]
     Active Substance: DEFERASIROX
     Indication: SICKLE CELL ANAEMIA
     Dosage: 500 MG, UNK
     Route: 065

REACTIONS (6)
  - Blood glucose decreased [Unknown]
  - Pyrexia [Unknown]
  - Serum ferritin increased [Recovered/Resolved]
  - Malaise [Unknown]
  - Pain [Recovering/Resolving]
  - Haemoglobin decreased [Recovered/Resolved]
